FAERS Safety Report 5149918-5 (Version None)
Quarter: 2006Q4

REPORT INFORMATION
  Report Type: 
  Country: None (occurrence: None)
  Receive Date: 20061113
  Receipt Date: 20061109
  Transmission Date: 20070319
  Serious: Yes (Hospitalization)
  Sender: FDA-Public Use
  Company Number: US-ROXANE LABORATORIES, INC-2006-DE-05958GD

PATIENT
  Age: 34 Year
  Sex: Female

DRUGS (6)
  1. SERTRALINE [Suspect]
     Route: 048
  2. IBUPROFEN [Suspect]
     Route: 048
  3. ATENOLOL [Suspect]
     Route: 048
  4. QUETIAPINE FUMARATE [Suspect]
     Route: 048
  5. VALPROATE SODIUM [Suspect]
     Route: 048
  6. RABEPRAZOLE SODIUM [Suspect]
     Route: 048

REACTIONS (8)
  - DEPRESSED LEVEL OF CONSCIOUSNESS [None]
  - HYPERAMMONAEMIA [None]
  - MULTIPLE DRUG OVERDOSE INTENTIONAL [None]
  - RESPIRATORY RATE INCREASED [None]
  - SELF-MEDICATION [None]
  - SOMNOLENCE [None]
  - THERAPY NON-RESPONDER [None]
  - VOMITING [None]
